FAERS Safety Report 6616965-3 (Version None)
Quarter: 2010Q1

REPORT INFORMATION
  Report Type: 
  Country: None (occurrence: None)
  Receive Date: 20100301
  Receipt Date: 20100223
  Transmission Date: 20100710
  Serious: Yes (Death)
  Sender: FDA-Public Use
  Company Number: 430006M03FRA

PATIENT
  Age: 49 Year
  Sex: Female

DRUGS (13)
  1. NOVANTRONE [Suspect]
     Indication: MULTIPLE SCLEROSIS
     Dosage: 20 MG, NOT REPORTED, INTRAVENOUS
     Route: 042
     Dates: start: 20000302, end: 20000930
  2. AVONEX [Suspect]
     Indication: MULTIPLE SCLEROSIS
     Dosage: INTRA-MUSCULAR
     Route: 030
     Dates: start: 19981014, end: 19990824
  3. REBIF [Suspect]
     Indication: MULTIPLE SCLEROSIS
     Dosage: 44 MCG, 1 IN 1 3 WEEKS, SUBCUTANEOUS
     Route: 058
     Dates: start: 20001113, end: 20021001
  4. REBIF [Suspect]
     Indication: MULTIPLE SCLEROSIS
     Dosage: SUBCUTANEOUS
     Route: 058
     Dates: start: 19960101, end: 19980101
  5. ANETHOLE TRITHIONE [Concomitant]
  6. AMLODIPINE BESYLATE [Concomitant]
  7. OXYBUTYNIN CHLORIDE [Concomitant]
  8. BACLOFEN [Concomitant]
  9. TOCOPHEROL CONCENTRATE CAP [Concomitant]
  10. NAFTIDROFURYL OXALATE [Concomitant]
  11. CLONAZEPAM [Concomitant]
  12. ZOLPIDEM [Concomitant]
  13. FLUOXETINE [Concomitant]

REACTIONS (4)
  - ACUTE PROMYELOCYTIC LEUKAEMIA [None]
  - DEHYDRATION [None]
  - INFECTION [None]
  - PANCYTOPENIA [None]
